FAERS Safety Report 6211329-9 (Version None)
Quarter: 2009Q2

REPORT INFORMATION
  Report Type: 
  Country: None (occurrence: None)
  Receive Date: 20090528
  Receipt Date: 20090515
  Transmission Date: 20091009
  Serious: Yes (Hospitalization)
  Sender: FDA-Public Use
  Company Number: 006477

PATIENT
  Age: 82 Year
  Sex: Male

DRUGS (12)
  1. PLETAL [Suspect]
     Indication: CEREBRAL INFARCTION
     Dosage: 100 MG, BID ORAL
     Route: 048
     Dates: start: 20081117, end: 20081208
  2. MUCOSTA (REBAMIPIDE) [Concomitant]
  3. SIMVASTATIN [Concomitant]
  4. LOSARTAN POTASSIUM [Concomitant]
  5. ISONIAZID [Concomitant]
  6. LANSOPRAZOLE [Concomitant]
  7. ASPIRIN [Concomitant]
  8. AMARYL [Concomitant]
  9. SIGMART (NICORANDIL) [Concomitant]
  10. MAGMITT (MAGNESIUM OXIDE) [Concomitant]
  11. JUVELA N (TOCOPHERYL NICOTINATE) [Concomitant]
  12. KIPRES (MONTELUKAST SODIUM) [Concomitant]

REACTIONS (3)
  - CARDIAC FAILURE [None]
  - CONDITION AGGRAVATED [None]
  - INTERSTITIAL LUNG DISEASE [None]
